FAERS Safety Report 5568208-X (Version None)
Quarter: 2007Q4

REPORT INFORMATION
  Report Type: 
  Country: None (occurrence: None)
  Receive Date: 20071220
  Receipt Date: 20071213
  Transmission Date: 20080405
  Serious: Yes (Other)
  Sender: FDA-Public Use
  Company Number: US-BAYER-200714158BCC

PATIENT
  Age: 58 Year
  Sex: Female
  Weight: 181 kg

DRUGS (11)
  1. ALEVE [Suspect]
     Indication: PAIN
     Dosage: TOTAL DAILY DOSE: 220 MG  UNIT DOSE: 220 MG
     Route: 048
  2. ASPIRIN [Suspect]
     Indication: DRUG USE FOR UNKNOWN INDICATION
  3. ASPIRIN [Concomitant]
  4. ASPIRIN [Concomitant]
  5. SYNTHROID [Concomitant]
  6. METFORMIN HCL [Concomitant]
  7. AVANDIA [Concomitant]
  8. IRON [Concomitant]
  9. VERAPAMIL [Concomitant]
  10. GLUCOPHAGE [Concomitant]
  11. GLUCOTROL [Concomitant]

REACTIONS (2)
  - CONTUSION [None]
  - MENORRHAGIA [None]
